FAERS Safety Report 11332545 (Version 1)
Quarter: 2015Q3

REPORT INFORMATION
  Report Type: Spontaneous
  Country: US (occurrence: US)
  Receive Date: 20150803
  Receipt Date: 20150803
  Transmission Date: 20151125
  Serious: No
  Sender: FDA-Public Use
  Company Number: US-ELI_LILLY_AND_COMPANY-US200810006819

PATIENT
  Age: 84 Year
  Sex: Female

DRUGS (1)
  1. ZYPREXA ZYDIS [Suspect]
     Active Substance: OLANZAPINE
     Dosage: 5 MG, DAILY (1/D)

REACTIONS (5)
  - Hallucination [Unknown]
  - Aggression [Unknown]
  - Anxiety [Unknown]
  - Incorrect dose administered [Unknown]
  - Sleep disorder [Unknown]
